FAERS Safety Report 8914336 (Version 1)
Quarter: 2012Q4

REPORT INFORMATION
  Report Type: 
  Country: US (occurrence: US)
  Receive Date: 20121119
  Receipt Date: 20121119
  Transmission Date: 20130627
  Serious: Yes (Other)
  Sender: FDA-Public Use
  Company Number: US-JNJFOC-20121008723

PATIENT
  Sex: Male
  Weight: 106.6 kg

DRUGS (7)
  1. STELARA [Suspect]
     Indication: PSORIASIS
     Route: 058
     Dates: start: 201210, end: 2012
  2. STELARA [Suspect]
     Indication: PSORIASIS
     Route: 058
     Dates: start: 2012
  3. AZITHROMYCIN [Concomitant]
     Indication: LUNG INFECTION
     Route: 048
     Dates: start: 2012
  4. AZITHROMYCIN [Concomitant]
     Indication: INFECTION PROPHYLAXIS
     Route: 048
     Dates: start: 2012
  5. AZITHROMYCIN [Concomitant]
     Indication: PROPHYLAXIS
     Route: 048
     Dates: start: 2012
  6. AMLODIPINE BESYLATE [Concomitant]
     Indication: HYPERTENSION
     Route: 048
     Dates: start: 2011
  7. BABY ASPIRIN [Concomitant]
     Route: 048

REACTIONS (16)
  - Pemphigus [Recovering/Resolving]
  - Arthritis [Recovering/Resolving]
  - Sluggishness [Recovering/Resolving]
  - Asthenia [Recovering/Resolving]
  - Arthralgia [Recovering/Resolving]
  - Multiple allergies [Not Recovered/Not Resolved]
  - Cough [Not Recovered/Not Resolved]
  - Muscular weakness [Not Recovered/Not Resolved]
  - Myalgia [Not Recovered/Not Resolved]
  - Sputum increased [Not Recovered/Not Resolved]
  - Eye irritation [Not Recovered/Not Resolved]
  - Asthenia [Not Recovered/Not Resolved]
  - Fatigue [Not Recovered/Not Resolved]
  - Scratch [Recovered/Resolved]
  - Wound [Unknown]
  - Pain [Recovering/Resolving]
